FAERS Safety Report 10200904 (Version 1)
Quarter: 2014Q2

REPORT INFORMATION
  Report Type: Spontaneous
  Country: US (occurrence: US)
  Receive Date: 20140528
  Receipt Date: 20140528
  Transmission Date: 20141212
  Serious: Yes (Hospitalization, Other)
  Sender: FDA-Public Use
  Company Number: US-SA-2014SA064070

PATIENT
  Age: 64 Year
  Sex: Female

DRUGS (1)
  1. LANTUS [Suspect]
     Indication: DIABETES MELLITUS
     Dosage: 100  UNITS EVERY MORNING AND 100 UNITS AT NIGHT DOSE:100 UNIT(S)
     Route: 065
     Dates: start: 1999

REACTIONS (3)
  - Medical device complication [Recovered/Resolved]
  - Stent placement [Unknown]
  - Drug administration error [Unknown]
